FAERS Safety Report 6484349-7 (Version None)
Quarter: 2009Q4

REPORT INFORMATION
  Report Type: 
  Country: None (occurrence: None)
  Receive Date: 20091209
  Receipt Date: 20091130
  Transmission Date: 20100525
  Serious: Yes (Other)
  Sender: FDA-Public Use
  Company Number: CHPA2009GB22460

PATIENT
  Sex: Female

DRUGS (2)
  1. LAMISIL AT CREAM UNKNOWN AF OR JI (NCH) [Suspect]
     Indication: TINEA PEDIS
     Dosage: 1 DF, ONCE/SINGLE
     Route: 061
     Dates: start: 20091107, end: 20091107
  2. ESTRADIOL [Concomitant]
     Indication: HORMONE REPLACEMENT THERAPY
     Dosage: 1 MG, QD

REACTIONS (11)
  - AURICULAR SWELLING [None]
  - BLISTER [None]
  - ERYTHEMA [None]
  - EYE SWELLING [None]
  - IMPAIRED WORK ABILITY [None]
  - INSOMNIA [None]
  - LOCAL SWELLING [None]
  - OEDEMA PERIPHERAL [None]
  - RASH GENERALISED [None]
  - SKIN BURNING SENSATION [None]
  - SWELLING FACE [None]
